FAERS Safety Report 13277163 (Version 1)
Quarter: 2017Q1

REPORT INFORMATION
  Report Type: Spontaneous
  Country: JP (occurrence: JP)
  Receive Date: 20170228
  Receipt Date: 20170228
  Transmission Date: 20170428
  Serious: Yes (Hospitalization)
  Sender: FDA-Public Use
  Company Number: JP-JNJFOC-20170211093

PATIENT
  Age: 70 Year
  Sex: Male

DRUGS (6)
  1. OXINORM [Suspect]
     Active Substance: OXYCODONE HYDROCHLORIDE
     Indication: PRODUCT USED FOR UNKNOWN INDICATION
     Route: 048
  2. VOLTAREN [Concomitant]
     Active Substance: DICLOFENAC SODIUM
     Route: 065
  3. LOXONIN [Concomitant]
     Active Substance: LOXOPROFEN SODIUM
     Route: 048
  4. DUROTEP MT [Suspect]
     Active Substance: FENTANYL
     Indication: CANCER PAIN
     Route: 062
  5. TRAMCET [Suspect]
     Active Substance: ACETAMINOPHEN\TRAMADOL
     Indication: PAIN
     Route: 048
  6. DUROTEP MT [Suspect]
     Active Substance: FENTANYL
     Indication: CANCER PAIN
     Route: 062

REACTIONS (5)
  - Off label use [Unknown]
  - Incorrect drug administration duration [Unknown]
  - Chills [Recovering/Resolving]
  - Inappropriate schedule of drug administration [Unknown]
  - Tremor [Recovering/Resolving]
